FAERS Safety Report 4888148-9 (Version None)
Quarter: 2006Q1

REPORT INFORMATION
  Report Type: 
  Country: None (occurrence: None)
  Receive Date: 20060119
  Receipt Date: 20060110
  Transmission Date: 20060701
  Serious: Yes (Hospitalization, Other)
  Sender: FDA-Public Use
  Company Number: 2006005733

PATIENT
  Sex: Female

DRUGS (1)
  1. NEURONTIN [Suspect]
     Indication: BIPOLAR DISORDER
     Dosage: 1800 MG (3 IN 1 D), ORAL
     Route: 048

REACTIONS (9)
  - BLOOD IRON DECREASED [None]
  - DISTURBANCE IN SOCIAL BEHAVIOUR [None]
  - GASTRIC BYPASS [None]
  - GASTRIC ULCER HAEMORRHAGE [None]
  - INCISION SITE COMPLICATION [None]
  - PAIN [None]
  - SOCIAL AVOIDANT BEHAVIOUR [None]
  - SURGICAL PROCEDURE REPEATED [None]
  - TREATMENT NONCOMPLIANCE [None]
